FAERS Safety Report 9753881 (Version 3)
Quarter: 2015Q3

REPORT INFORMATION
  Report Type: Spontaneous
  Country: US (occurrence: US)
  Receive Date: 20131213
  Receipt Date: 20150805
  Transmission Date: 20151125
  Serious: No
  Sender: FDA-Public Use
  Company Number: US-GILEAD-2010-0027642

PATIENT
  Age: 70 Year
  Sex: Female
  Weight: 99.79 kg

DRUGS (19)
  1. LOPRESSOR [Concomitant]
     Active Substance: METOPROLOL TARTRATE
  2. PREDNISONE. [Concomitant]
     Active Substance: PREDNISONE
  3. ALDACTONE [Concomitant]
     Active Substance: SPIRONOLACTONE
  4. LETAIRIS [Suspect]
     Active Substance: AMBRISENTAN
     Indication: PULMONARY ARTERIAL HYPERTENSION
     Route: 048
     Dates: start: 20070915
  5. CARDIZEM [Concomitant]
     Active Substance: DILTIAZEM HYDROCHLORIDE
  6. FLORASTOR [Concomitant]
     Active Substance: SACCHAROMYCES CEREVISIAE
  7. ADCIRCA [Concomitant]
     Active Substance: TADALAFIL
  8. CELLCEPT [Concomitant]
     Active Substance: MYCOPHENOLATE MOFETIL\MYCOPHENOLATE MOFETIL HYDROCHLORIDE
  9. SKELAXIN [Concomitant]
     Active Substance: METAXALONE
  10. DURICEF [Concomitant]
     Active Substance: CEFADROXIL
  11. TRAZODONE [Concomitant]
     Active Substance: TRAZODONE HYDROCHLORIDE
  12. METOCLOPRAMIDE. [Concomitant]
     Active Substance: METOCLOPRAMIDE
  13. DIOVAN [Concomitant]
     Active Substance: VALSARTAN
  14. PRILOSEC [Concomitant]
     Active Substance: OMEPRAZOLE MAGNESIUM
  15. LASIX [Concomitant]
     Active Substance: FUROSEMIDE
  16. COUMADIN [Concomitant]
     Active Substance: WARFARIN SODIUM
  17. CYMBALTA [Concomitant]
     Active Substance: DULOXETINE HYDROCHLORIDE
  18. ASPIRIN. [Concomitant]
     Active Substance: ASPIRIN
  19. OXYGEN. [Concomitant]
     Active Substance: OXYGEN

REACTIONS (1)
  - Oedema [Recovered/Resolved]
